FAERS Safety Report 17010046 (Version 1)
Quarter: 2019Q4

REPORT INFORMATION
  Report Type: Spontaneous
  Country: FR (occurrence: FR)
  Receive Date: 20191108
  Receipt Date: 20191108
  Transmission Date: 20200122
  Serious: Yes (Hospitalization)
  Sender: FDA-Public Use
  Company Number: FR-PFIZER INC-2019477091

PATIENT
  Age: 57 Year
  Sex: Male
  Weight: 99 kg

DRUGS (8)
  1. AUGMENTIN [Concomitant]
     Active Substance: AMOXICILLIN\CLAVULANATE POTASSIUM
     Route: 048
     Dates: start: 20190814
  2. LYRICA [Concomitant]
     Active Substance: PREGABALIN
     Route: 048
  3. LAROXYL [Concomitant]
     Active Substance: AMITRIPTYLINE HYDROCHLORIDE
     Route: 048
  4. LEXOMIL [Concomitant]
     Active Substance: BROMAZEPAM
     Route: 048
  5. THERALENE [Concomitant]
     Active Substance: TRIMEPRAZINE
     Route: 048
  6. NOCTAMIDE [Concomitant]
     Active Substance: LORMETAZEPAM
     Route: 048
  7. IBUPROFEN. [Suspect]
     Active Substance: IBUPROFEN
     Indication: OEDEMA
     Dosage: 1200 MG, 1X/DAY
     Route: 048
     Dates: start: 20190814, end: 20190815
  8. ABILIFY [Concomitant]
     Active Substance: ARIPIPRAZOLE
     Route: 048

REACTIONS (2)
  - Erysipelas [Recovering/Resolving]
  - Disease recurrence [Recovering/Resolving]

NARRATIVE: CASE EVENT DATE: 20190816
